FAERS Safety Report 5379846-1 (Version None)
Quarter: 2007Q3

REPORT INFORMATION
  Report Type: 
  Country: None (occurrence: None)
  Receive Date: 20070703
  Receipt Date: 20070621
  Transmission Date: 20080115
  Serious: Yes (Other)
  Sender: FDA-Public Use
  Company Number: 16841

PATIENT
  Age: 8 Year
  Sex: Male

DRUGS (3)
  1. METHOTREXATE [Suspect]
     Indication: T-CELL TYPE ACUTE LEUKAEMIA
  2. VINCRISTINE [Suspect]
     Indication: T-CELL TYPE ACUTE LEUKAEMIA
  3. MERCAPTOPURINE [Suspect]
     Indication: T-CELL TYPE ACUTE LEUKAEMIA

REACTIONS (7)
  - ALOPECIA [None]
  - B-LYMPHOCYTE COUNT DECREASED [None]
  - HUMORAL IMMUNE DEFECT [None]
  - HYPOGAMMAGLOBULINAEMIA [None]
  - LOWER RESPIRATORY TRACT INFECTION [None]
  - MADAROSIS [None]
  - RASH PAPULOSQUAMOUS [None]
